FAERS Safety Report 8589416-X (Version None)
Quarter: 2012Q3

REPORT INFORMATION
  Report Type: 
  Country: None (occurrence: None)
  Receive Date: 20120813
  Receipt Date: 20120806
  Transmission Date: 20120928
  Serious: Yes (Hospitalization)
  Sender: FDA-Public Use
  Company Number: US-VERTEX PHARMACEUTICALS INC.-AE-2012-011762

PATIENT
  Sex: Female

DRUGS (5)
  1. INCIVEK [Suspect]
     Indication: HEPATITIS C
     Route: 048
     Dates: start: 20120422, end: 20120712
  2. PEGASYS [Concomitant]
     Indication: HEPATITIS C
     Dates: start: 20120422, end: 20120712
  3. PEGASYS [Concomitant]
     Dates: start: 20120720
  4. RIBAVIRIN [Concomitant]
     Indication: HEPATITIS C
     Dates: start: 20120422, end: 20120712
  5. RIBAVIRIN [Concomitant]
     Dates: start: 20120720

REACTIONS (2)
  - GASTROENTERITIS [None]
  - DEHYDRATION [None]
